FAERS Safety Report 8378953-9 (Version None)
Quarter: 2012Q2

REPORT INFORMATION
  Report Type: 
  Country: None (occurrence: None)
  Receive Date: 20120523
  Receipt Date: 20120518
  Transmission Date: 20120825
  Serious: Yes (Hospitalization, Other)
  Sender: FDA-Public Use
  Company Number: US-PFIZER INC-2012121489

PATIENT
  Sex: Female
  Weight: 58.957 kg

DRUGS (19)
  1. EFFEXOR XR [Suspect]
     Dosage: 75 MG, 2X/DAY
     Route: 048
  2. GEODON [Suspect]
     Indication: MOOD SWINGS
     Dosage: 80 MG, 2X/DAY
     Dates: start: 20120501
  3. SEROQUEL [Suspect]
     Dosage: 800 MG, DAILY
  4. ASPIRIN [Concomitant]
     Indication: ANTICOAGULANT THERAPY
     Dosage: 81 MG, DAILY
  5. FIORICET [Concomitant]
     Indication: CLUSTER HEADACHE
     Dosage: UNK
  6. EFFEXOR XR [Suspect]
     Indication: ANTIDEPRESSANT THERAPY
     Dosage: 75 MG, 1X/DAY
     Route: 048
  7. LAMICTAL [Suspect]
     Indication: CONVULSION
     Dosage: 200 MG, 2X/DAY
  8. GEODON [Suspect]
     Indication: BIPOLAR DISORDER
     Dosage: 40 MG, 2X/DAY
     Dates: start: 20120501, end: 20120501
  9. SEROQUEL [Suspect]
     Indication: DEPRESSION
     Dosage: 200 MG, DAILY
  10. LAMICTAL [Suspect]
     Indication: MANIA
     Dosage: 1800 MG, AT ONCE
  11. LAMICTAL [Suspect]
     Indication: MOOD SWINGS
  12. ATIVAN [Concomitant]
     Indication: ANXIETY
     Dosage: 2 MG, 3X/DAY
  13. NEXIUM [Concomitant]
     Indication: ABDOMINAL PAIN
     Dosage: 4 MG, DAILY
  14. LORATADINE [Concomitant]
     Indication: HYPERSENSITIVITY
     Dosage: UNKNOWN DOSE DAILY
  15. ZOMIG-ZMT [Concomitant]
     Indication: CLUSTER HEADACHE
     Dosage: UNK, AS NEEDED
     Route: 048
  16. TIGAN [Concomitant]
     Indication: NAUSEA
     Dosage: UNK
  17. NICORETTE [Suspect]
     Indication: SMOKING CESSATION THERAPY
     Dosage: UNK
     Route: 048
  18. LESCOL [Concomitant]
     Indication: BLOOD CHOLESTEROL ABNORMAL
     Dosage: 20 MG, DAILY
  19. ZOMIG [Concomitant]
     Indication: CLUSTER HEADACHE
     Dosage: UNK, AS NEEDED
     Route: 045

REACTIONS (10)
  - THERAPEUTIC RESPONSE UNEXPECTED [None]
  - TREMOR [None]
  - SOMNOLENCE [None]
  - ACCIDENTAL OVERDOSE [None]
  - INCORRECT DOSE ADMINISTERED [None]
  - DRUG INEFFECTIVE [None]
  - HYPERHIDROSIS [None]
  - FEELING HOT [None]
  - WEIGHT INCREASED [None]
  - DIARRHOEA [None]
